FAERS Safety Report 4609657-3 (Version None)
Quarter: 2005Q1

REPORT INFORMATION
  Report Type: 
  Country: None (occurrence: None)
  Receive Date: 20050314
  Receipt Date: 20050228
  Transmission Date: 20050727
  Serious: No
  Sender: FDA-Public Use
  Company Number: 2005CG00261

PATIENT
  Age: 40 Year
  Sex: Female

DRUGS (2)
  1. EMLA [Suspect]
     Indication: LOCAL ANAESTHESIA
     Dates: start: 20040428, end: 20040428
  2. ANTIDEPRESSANT [Concomitant]

REACTIONS (5)
  - CORNEAL ULCER [None]
  - DRUG TOXICITY [None]
  - EYE INJURY [None]
  - EYE IRRITATION [None]
  - OFF LABEL USE [None]
